FAERS Safety Report 13257285 (Version 2)
Quarter: 2017Q2

REPORT INFORMATION
  Report Type: Spontaneous
  Country: US (occurrence: US)
  Receive Date: 20170221
  Receipt Date: 20170404
  Transmission Date: 20170830
  Serious: Yes (Hospitalization, Other)
  Sender: FDA-Public Use
  Company Number: US-INCYTE CORPORATION-2017IN001053

PATIENT
  Age: 93 Year
  Sex: Male

DRUGS (29)
  1. RIVAROXABAN [Concomitant]
     Active Substance: RIVAROXABAN
     Indication: PRODUCT USED FOR UNKNOWN INDICATION
     Dosage: 15 MG, BID; WITH MEALS
     Route: 048
  2. FERROUS SULFATE. [Concomitant]
     Active Substance: FERROUS SULFATE
     Indication: PRODUCT USED FOR UNKNOWN INDICATION
     Dosage: 325 MG, QD
     Route: 048
     Dates: start: 20150511
  3. ALBUTEROL                          /00139501/ [Concomitant]
     Active Substance: ALBUTEROL
     Indication: WHEEZING
     Dosage: 2 PUFFS, TID, PRN
  4. BETHANECHOL [Concomitant]
     Active Substance: BETHANECHOL
     Indication: BLADDER DISORDER
     Dosage: 25 MG, TID
     Route: 048
     Dates: start: 20160121
  5. FUROSEMIDE. [Concomitant]
     Active Substance: FUROSEMIDE
     Indication: FLUID RETENTION
     Dosage: 20 MG, QD
     Route: 048
     Dates: start: 20090630
  6. POTASSIUM CHLORIDE. [Concomitant]
     Active Substance: POTASSIUM CHLORIDE
     Indication: NEPHROPATHY
  7. RIOCIGUAT [Concomitant]
     Active Substance: RIOCIGUAT
     Indication: PRODUCT USED FOR UNKNOWN INDICATION
     Dosage: 1 MG, TID
     Route: 048
  8. SPIRIVA [Concomitant]
     Active Substance: TIOTROPIUM BROMIDE MONOHYDRATE
     Indication: BRONCHITIS
     Dosage: 18MCG (1 CAP) QD, AS DIRECTED
     Dates: start: 20161004
  9. ISOSORBIDE MONONITRATE. [Concomitant]
     Active Substance: ISOSORBIDE MONONITRATE
     Indication: ARTERIOSCLEROSIS CORONARY ARTERY
     Dosage: 30 MG, QD
     Dates: start: 20130703
  10. POLYETHYLENE GLYCOL 3350. [Concomitant]
     Active Substance: POLYETHYLENE GLYCOL 3350
     Indication: CONSTIPATION
     Dosage: 1 CAPFUL (17G) IN 8 OZ WATER DAILY
     Route: 048
     Dates: start: 20100630
  11. SIMVASTATIN. [Concomitant]
     Active Substance: SIMVASTATIN
     Indication: BLOOD CHOLESTEROL
     Dosage: 20 MG, QHS
     Route: 048
     Dates: start: 20080421
  12. ACETAMINOPHEN AND CODEINE [Concomitant]
     Active Substance: ACETAMINOPHEN\CODEINE PHOSPHATE
     Indication: ARTHRALGIA
     Dosage: 1 TABLET EVERY 6 HOURS PRN
     Dates: start: 20120206
  13. SYMBICORT [Concomitant]
     Active Substance: BUDESONIDE\FORMOTEROL FUMARATE DIHYDRATE
     Indication: DYSPNOEA
     Dosage: 2 PUFFS; BID
     Dates: start: 20161004
  14. NITROGLYCERINE [Concomitant]
     Active Substance: NITROGLYCERIN
     Indication: CHEST PAIN
     Dosage: 0.4 MG Q5MIN, PRN
     Route: 060
  15. METOPROLOL. [Concomitant]
     Active Substance: METOPROLOL
     Indication: ARTERIOSCLEROSIS CORONARY ARTERY
     Dosage: 50 MG, QD
     Route: 048
     Dates: start: 20101103
  16. POTASSIUM CHLORIDE. [Concomitant]
     Active Substance: POTASSIUM CHLORIDE
     Indication: SUPPLEMENTATION THERAPY
     Dosage: 10 MEQ; DAILY
     Route: 048
     Dates: start: 20130517
  17. TIOTROPIUM [Concomitant]
     Active Substance: TIOTROPIUM
     Indication: DYSPNOEA
     Dosage: 18 MCG; QD
  18. HYDROCODONE BITARTRATE AND ACETAMINOPHEN [Concomitant]
     Active Substance: ACETAMINOPHEN\HYDROCODONE BITARTRATE
     Indication: PAIN
     Dosage: 1/2 TO 1 TABLET; TID; PRN
     Route: 048
     Dates: start: 20100303
  19. NITROSTAT [Concomitant]
     Active Substance: NITROGLYCERIN
     Indication: CHEST PAIN
     Dosage: 0.4 MG, PRN
     Route: 060
     Dates: start: 20090316
  20. VITAMIN B COMPLEX [Concomitant]
     Active Substance: CYANOCOBALAMIN\DEXPANTHENOL\NIACINAMIDE\PYRIDOXINE HYDROCHLORIDE\RIBOFLAVIN 5^-PHOSPHATE SODIUM\THIAMINE HYDROCHLORIDE\VITAMIN B COMPLEX
     Indication: PRODUCT USED FOR UNKNOWN INDICATION
     Dosage: 1 DF, QD
     Route: 048
     Dates: start: 20150223
  21. JAKAFI [Suspect]
     Active Substance: RUXOLITINIB
     Indication: MYELOFIBROSIS
     Dosage: 5 MG, QD
     Route: 048
     Dates: start: 20160406
  22. OMEPRAZOLE. [Concomitant]
     Active Substance: OMEPRAZOLE
     Indication: GASTROOESOPHAGEAL REFLUX DISEASE
  23. POTASSIUM CHLORIDE. [Concomitant]
     Active Substance: POTASSIUM CHLORIDE
     Indication: HYPERTENSIVE HEART DISEASE
  24. NITROSTAT [Concomitant]
     Active Substance: NITROGLYCERIN
     Indication: DYSPNOEA
  25. PROAIR HFA [Concomitant]
     Active Substance: ALBUTEROL SULFATE
     Indication: PULMONARY HYPERTENSION
     Dosage: 2 PUFFS; TID; PRN
     Dates: start: 20150511
  26. JAKAFI [Suspect]
     Active Substance: RUXOLITINIB
     Dosage: 1 TAB EVERY OTHER DAY ON ODD DAY
     Route: 048
     Dates: start: 20160808
  27. BUDESONIDE W/FORMOTEROL [Concomitant]
     Active Substance: BUDESONIDE\FORMOTEROL
     Indication: DYSPNOEA
     Dosage: 2 PUFFS, BID
  28. OMEPRAZOLE. [Concomitant]
     Active Substance: OMEPRAZOLE
     Indication: OESOPHAGITIS
     Dosage: 20 MG, QD
     Route: 048
     Dates: start: 20120302
  29. TAMSULOSIN [Concomitant]
     Active Substance: TAMSULOSIN
     Indication: PROSTATE CANCER
     Dosage: 0.4 MG, QD
     Route: 048
     Dates: start: 20110901

REACTIONS (12)
  - Urinary tract infection [Unknown]
  - Acute kidney injury [Unknown]
  - Dysuria [Unknown]
  - Respiratory failure [Unknown]
  - Prostate cancer [Unknown]
  - Platelet count increased [Unknown]
  - Haemoglobin decreased [Unknown]
  - Haematocrit decreased [Unknown]
  - International normalised ratio increased [Unknown]
  - Pulmonary embolism [Unknown]
  - Cardiac failure congestive [Unknown]
  - Asthenia [Unknown]

NARRATIVE: CASE EVENT DATE: 20161026
